FAERS Safety Report 18413191 (Version 2)
Quarter: 2020Q4

REPORT INFORMATION
  Report Type: Spontaneous
  Country: GB (occurrence: GB)
  Receive Date: 20201021
  Receipt Date: 20201029
  Transmission Date: 20210114
  Serious: Yes (Hospitalization)
  Sender: FDA-Public Use
  Company Number: GB-NEUROCRINE BIOSCIENCES INC.-2020NBI03395

PATIENT
  Age: 72 Year
  Sex: Male

DRUGS (10)
  1. ONGENTYS [Suspect]
     Active Substance: OPICAPONE
     Indication: PARKINSON^S DISEASE
     Dosage: UNKNOWN
     Route: 065
     Dates: start: 201806, end: 202006
  2. CO-BENELDOPA [Concomitant]
     Active Substance: BENSERAZIDE HYDROCHLORIDE\LEVODOPA
     Dates: start: 200607
  3. CO-CARELDOPA [Concomitant]
     Active Substance: CARBIDOPA\LEVODOPA
     Indication: DEMENTIA
     Route: 048
  4. CO-BENELDOPA [Concomitant]
     Active Substance: BENSERAZIDE HYDROCHLORIDE\LEVODOPA
     Dosage: CR 250 MG NOCTE
  5. CO-BENELDOPA [Concomitant]
     Active Substance: BENSERAZIDE HYDROCHLORIDE\LEVODOPA
     Dosage: UP TO 3 TIMES DAILY
     Route: 048
     Dates: start: 2016
  6. SENNA ALEXANDRINA [Concomitant]
     Active Substance: SENNA LEAF
     Route: 048
  7. FLUDROCORTISONE [Concomitant]
     Active Substance: FLUDROCORTISONE
     Dates: start: 2014
  8. LACTULOSE. [Concomitant]
     Active Substance: LACTULOSE
     Dosage: 10-20 ML DAILY
     Route: 048
  9. ONGENTYS [Suspect]
     Active Substance: OPICAPONE
     Dosage: UNKNOWN
     Route: 065
     Dates: start: 202009
  10. OMEPRAZOLE. [Concomitant]
     Active Substance: OMEPRAZOLE
     Route: 048

REACTIONS (7)
  - Infection [Unknown]
  - Dementia [Unknown]
  - Hallucination, visual [Recovering/Resolving]
  - Orthostatic hypotension [Recovering/Resolving]
  - Delusion [Unknown]
  - Therapy cessation [Unknown]
  - Dyskinesia [Recovering/Resolving]

NARRATIVE: CASE EVENT DATE: 202006
